FAERS Safety Report 19492928 (Version 4)
Quarter: 2021Q3

REPORT INFORMATION
  Report Type: Report from Study
  Country: RO (occurrence: RO)
  Receive Date: 20210705
  Receipt Date: 20210721
  Transmission Date: 20211014
  Serious: Yes (Hospitalization, Other)
  Sender: FDA-Public Use
  Company Number: RO-GILEAD-2021-0535774

PATIENT
  Age: 70 Year
  Sex: Female

DRUGS (11)
  1. BETALOC [METOPROLOL SUCCINATE] [Concomitant]
     Active Substance: METOPROLOL SUCCINATE
     Indication: CARDIAC DISORDER
  2. ACIFOL [FOLIC ACID] [Concomitant]
  3. MONOPRIL [Concomitant]
     Active Substance: FOSINOPRIL SODIUM
  4. SILIMARINA [Concomitant]
     Indication: LIVER DISORDER
  5. LEDIPASVIR/SOFOSBUVIR [Suspect]
     Active Substance: LEDIPASVIR\SOFOSBUVIR
     Indication: HEPATITIS C
     Dosage: 1 DOSAGE FORM, QD
     Route: 048
     Dates: start: 20210611, end: 20210628
  6. SINTROM [Concomitant]
     Active Substance: ACENOCOUMAROL
  7. BETASERC [Concomitant]
     Active Substance: BETAHISTINE
  8. LEDIPASVIR/SOFOSBUVIR [Suspect]
     Active Substance: LEDIPASVIR\SOFOSBUVIR
     Indication: HEPATIC CIRRHOSIS
  9. URSOFALK [Concomitant]
     Active Substance: URSODIOL
     Indication: LIVER DISORDER
  10. SPIRONOLACTONA [Concomitant]
     Active Substance: SPIRONOLACTONE
     Indication: FLUID RETENTION
  11. FUROSEMIDUM [FUROSEMIDE] [Concomitant]
     Active Substance: FUROSEMIDE
     Indication: FLUID RETENTION

REACTIONS (5)
  - Feeling hot [Not Recovered/Not Resolved]
  - Condition aggravated [Not Recovered/Not Resolved]
  - Melaena [Recovered/Resolved]
  - Blood creatinine increased [Recovered/Resolved]
  - Hyperhidrosis [Not Recovered/Not Resolved]

NARRATIVE: CASE EVENT DATE: 20210611
